FAERS Safety Report 6898650-6 (Version None)
Quarter: 2010Q3

REPORT INFORMATION
  Report Type: 
  Country: None (occurrence: None)
  Receive Date: 20100802
  Receipt Date: 20071115
  Transmission Date: 20110219
  Serious: Yes (Other)
  Sender: FDA-Public Use
  Company Number: US-PFIZER INC-2007078994

PATIENT
  Sex: Male
  Weight: 99.8 kg

DRUGS (2)
  1. LYRICA [Suspect]
     Indication: NEUROPATHY PERIPHERAL
     Route: 048
  2. ATIVAN [Suspect]
     Indication: AGITATION
     Route: 048

REACTIONS (2)
  - CONFUSIONAL STATE [None]
  - SOMNOLENCE [None]
